FAERS Safety Report 24872300 (Version 1)
Quarter: 2025Q1

REPORT INFORMATION
  Report Type: Spontaneous
  Country: TR (occurrence: TR)
  Receive Date: 20250122
  Receipt Date: 20250122
  Transmission Date: 20250408
  Serious: Yes (Death, Hospitalization)
  Sender: AMGEN
  Company Number: TR-AMGEN-TURSP2025009225

PATIENT
  Age: 33 Year
  Sex: Female

DRUGS (10)
  1. NEUPOGEN [Suspect]
     Active Substance: FILGRASTIM
     Indication: Neutropenia
     Route: 065
  2. CYTARABINE [Suspect]
     Active Substance: CYTARABINE
     Indication: Product used for unknown indication
     Route: 065
  3. MITOXANTRONE [Suspect]
     Active Substance: MITOXANTRONE HYDROCHLORIDE
     Indication: Product used for unknown indication
     Route: 065
  4. IMIPENEM [Concomitant]
     Active Substance: IMIPENEM
     Dosage: 2 GRAM, QD
  5. CLARITHROMYCIN [Concomitant]
     Active Substance: CLARITHROMYCIN
     Dosage: 500 MILLIGRAM, BID
  6. AMIKACIN [Concomitant]
     Active Substance: AMIKACIN
     Indication: Pseudomonas infection
  7. CEFEPIME [Concomitant]
     Active Substance: CEFEPIME HYDROCHLORIDE
     Dosage: 2 GRAM, BID
  8. CIPROFLOXACIN [Concomitant]
     Active Substance: CIPROFLOXACIN
     Dosage: 400 MILLIGRAM, BID
  9. VANCOMYCIN [Concomitant]
     Active Substance: VANCOMYCIN
     Dosage: 1 GRAM, BID
  10. SULFAMETHOXAZOLE\TRIMETHOPRIM [Concomitant]
     Active Substance: SULFAMETHOXAZOLE\TRIMETHOPRIM

REACTIONS (7)
  - Respiratory failure [Fatal]
  - Hypoxia [Unknown]
  - Thrombocytopenia [Unknown]
  - Staphylococcal infection [Unknown]
  - Geotrichum infection [Unknown]
  - Respiratory tract infection fungal [Unknown]
  - Respiratory tract infection bacterial [Unknown]
